FAERS Safety Report 24760262 (Version 2)
Quarter: 2025Q1

REPORT INFORMATION
  Report Type: Spontaneous
  Country: US (occurrence: US)
  Receive Date: 20241220
  Receipt Date: 20250301
  Transmission Date: 20250408
  Serious: No
  Sender: SANOFI AVENTIS
  Company Number: US-SA-2024SA374796

PATIENT
  Age: 8 Year
  Sex: Female

DRUGS (1)
  1. DUPIXENT [Suspect]
     Active Substance: DUPILUMAB
     Indication: Eosinophilic oesophagitis
     Dosage: 200 MG, QOW
     Route: 058
     Dates: start: 20240612

REACTIONS (3)
  - Dysphagia [Unknown]
  - Retching [Unknown]
  - Throat clearing [Unknown]

NARRATIVE: CASE EVENT DATE: 20240101
